FAERS Safety Report 22587047 (Version 3)
Quarter: 2025Q4

REPORT INFORMATION
  Report Type: Spontaneous
  Country: US (occurrence: US)
  Receive Date: 20230612
  Receipt Date: 20251117
  Transmission Date: 20260118
  Serious: No
  Sender: SANOFI AVENTIS
  Company Number: US-SA-SAC20230609000092

PATIENT
  Age: 80 Year
  Sex: Female

DRUGS (1)
  1. DUPIXENT [Suspect]
     Active Substance: DUPILUMAB
     Indication: Dermatitis atopic
     Dosage: 300 MG, QOW
     Route: 058
     Dates: start: 202305

REACTIONS (5)
  - Muscle spasms [Unknown]
  - Pollakiuria [Unknown]
  - Pain [Unknown]
  - Pruritus [Unknown]
  - Oedema [Unknown]

NARRATIVE: CASE EVENT DATE: 20230101
